FAERS Safety Report 23381826 (Version 2)
Quarter: 2024Q1

REPORT INFORMATION
  Report Type: Spontaneous
  Country: None (occurrence: UA)
  Receive Date: 20240109
  Receipt Date: 20240119
  Transmission Date: 20240410
  Serious: Yes (Life-Threatening)
  Sender: FDA-Public Use
  Company Number: UA-B.Braun Medical Inc.-2150645

PATIENT
  Age: 35 Year
  Sex: Female

DRUGS (8)
  1. BUPIVACAINE HYDROCHLORIDE WITH DEXTROSE [Suspect]
     Active Substance: BUPIVACAINE HYDROCHLORIDE
     Indication: Spinal anaesthesia
     Route: 037
     Dates: start: 20231031, end: 20231031
  2. PROPOFOL LIPURO [Suspect]
     Active Substance: PROPOFOL
  3. LACTATED RINGERS SOLUTION [Suspect]
     Active Substance: CALCIUM CHLORIDE\POTASSIUM CHLORIDE\SODIUM CHLORIDE\SODIUM LACTATE
  4. FENTANYL [Suspect]
     Active Substance: FENTANYL\FENTANYL CITRATE
  5. OXYTOCIN [Concomitant]
     Active Substance: OXYTOCIN
  6. TRANEXAMIC ACID [Concomitant]
     Active Substance: TRANEXAMIC ACID
  7. METHYLERGOBREVIN [Concomitant]
  8. MISOPROSTOL [Concomitant]
     Active Substance: MISOPROSTOL

REACTIONS (6)
  - Disseminated intravascular coagulation [None]
  - Uterine haemorrhage [None]
  - Tachycardia [None]
  - Tremor [None]
  - Acute kidney injury [None]
  - Maternal exposure during pregnancy [None]
